FAERS Safety Report 19450509 (Version 2)
Quarter: 2021Q3

REPORT INFORMATION
  Report Type: Report from Study
  Country: US (occurrence: US)
  Receive Date: 20210622
  Receipt Date: 20210705
  Transmission Date: 20211014
  Serious: Yes (Other)
  Sender: FDA-Public Use
  Company Number: US-PFIZER INC-2021480592

PATIENT
  Age: 41 Year
  Sex: Female

DRUGS (3)
  1. FASLODEX [Concomitant]
     Active Substance: FULVESTRANT
     Dosage: UNK, MONTHLY
     Route: 030
  2. IBRANCE [Suspect]
     Active Substance: PALBOCICLIB
     Dosage: 100 MG, CYCLIC (DAILY FOR 21 DAYS ON, 7 DAYS OFF)
     Route: 048
     Dates: start: 20210504, end: 20210525
  3. IBRANCE [Suspect]
     Active Substance: PALBOCICLIB
     Indication: BREAST CANCER
     Dosage: 125 MG
     Route: 048
     Dates: start: 202104, end: 20210427

REACTIONS (20)
  - Clostridium difficile infection [Not Recovered/Not Resolved]
  - Weight decreased [Unknown]
  - Fatigue [Not Recovered/Not Resolved]
  - Lip blister [Unknown]
  - Gastrooesophageal reflux disease [Unknown]
  - Alopecia [Not Recovered/Not Resolved]
  - White blood cell count decreased [Unknown]
  - Wheezing [Unknown]
  - Neutropenia [Unknown]
  - Skin haemorrhage [Unknown]
  - Oral mucosal blistering [Unknown]
  - Dyspnoea [Unknown]
  - Diarrhoea [Unknown]
  - Pain in extremity [Unknown]
  - Headache [Recovered/Resolved]
  - Amenorrhoea [Unknown]
  - Decreased appetite [Unknown]
  - Nausea [Not Recovered/Not Resolved]
  - Tongue blistering [Unknown]
  - Abdominal pain [Unknown]

NARRATIVE: CASE EVENT DATE: 20210426
